FAERS Safety Report 8172423-9 (Version None)
Quarter: 2012Q1

REPORT INFORMATION
  Report Type: 
  Country: None (occurrence: None)
  Receive Date: 20120224
  Receipt Date: 20120224
  Transmission Date: 20120608
  Serious: Yes (Hospitalization)
  Sender: FDA-Public Use
  Company Number: None

PATIENT
  Age: 64 Year
  Sex: Male
  Weight: 79.9193 kg

DRUGS (11)
  1. CITALOPRAM HYDROBROMIDE [Concomitant]
  2. METOPROLOL TARTRATE [Concomitant]
  3. POLYETHYLENE GLYCOL [Concomitant]
  4. DOXORUBICIN HCL [Suspect]
     Dosage: 75 MG/M2, 21 DAY INT, IV
     Route: 042
     Dates: start: 20120118
  5. IFOSFAMIDE [Suspect]
     Indication: LEIOMYOSARCOMA
     Dosage: 7.5 G/M2, 21 DAY INT, IV
     Route: 042
     Dates: start: 20120118
  6. NEUTRA PHOS [Concomitant]
  7. POTASSIUM CHLORIDE [Concomitant]
  8. DOCUSATE SODIUM [Concomitant]
  9. PROCHLORPERAZINE MALEATE [Concomitant]
  10. ATIVAN [Concomitant]
  11. ONDANSETRON [Concomitant]

REACTIONS (7)
  - ASTHENIA [None]
  - ELECTROLYTE IMBALANCE [None]
  - HYPOKALAEMIA [None]
  - TACHYCARDIA [None]
  - DEHYDRATION [None]
  - HYPOPHOSPHATAEMIA [None]
  - FATIGUE [None]
